FAERS Safety Report 14822689 (Version 1)
Quarter: 2018Q2

REPORT INFORMATION
  Report Type: Report from Study
  Country: US (occurrence: US)
  Receive Date: 20180427
  Receipt Date: 20180427
  Transmission Date: 20180711
  Serious: Yes (Other)
  Sender: FDA-Public Use
  Company Number: US-TEVA-2018-US-886443

PATIENT
  Age: 28 Year
  Sex: Female

DRUGS (1)
  1. COPAXONE [Suspect]
     Active Substance: GLATIRAMER ACETATE
     Indication: MULTIPLE SCLEROSIS
     Route: 058
     Dates: start: 20180218

REACTIONS (4)
  - Hyperhidrosis [Unknown]
  - Pharyngeal oedema [Unknown]
  - Dyspnoea [Recovered/Resolved]
  - Feeling cold [Unknown]

NARRATIVE: CASE EVENT DATE: 20180422
